FAERS Safety Report 4448047-3 (Version None)
Quarter: 2004Q3

REPORT INFORMATION
  Report Type: 
  Country: None (occurrence: None)
  Receive Date: 20040812
  Receipt Date: 20040628
  Transmission Date: 20050211
  Serious: No
  Sender: FDA-Public Use
  Company Number: USA040671340

PATIENT
  Age: 72 Year
  Sex: Male

DRUGS (11)
  1. CIALIS [Suspect]
     Indication: ERECTILE DYSFUNCTION
     Dosage: 20 MG AS NEEDED
     Dates: start: 20040621
  2. FLOMAX [Concomitant]
  3. LIPITOR [Concomitant]
  4. FLONASE [Concomitant]
  5. PROSCAR [Concomitant]
  6. ASPIRIN [Concomitant]
  7. VITAMIN E [Concomitant]
  8. VITAMIN C [Concomitant]
  9. FOLIC ACID [Concomitant]
  10. ADVAIR DISKUS 100/50 [Concomitant]
  11. CLARINEX/USA/(DESLORATADINE) [Concomitant]

REACTIONS (1)
  - HEADACHE [None]
